FAERS Safety Report 10468418 (Version 1)
Quarter: 2014Q3

REPORT INFORMATION
  Report Type: Spontaneous
  Country: US (occurrence: US)
  Receive Date: 20140922
  Receipt Date: 20140922
  Transmission Date: 20150326
  Serious: No
  Sender: FDA-Public Use
  Company Number: US-ALLERGAN-1400126US

PATIENT
  Age: 4 Decade
  Sex: Male

DRUGS (1)
  1. LASTACAFT [Suspect]
     Active Substance: ALCAFTADINE
     Indication: EYE ALLERGY
     Dosage: 2 GTT, QD
     Route: 047
     Dates: start: 201312

REACTIONS (1)
  - Scleral hyperaemia [Recovered/Resolved]
